FAERS Safety Report 7809970-2 (Version None)
Quarter: 2011Q4

REPORT INFORMATION
  Report Type: 
  Country: None (occurrence: None)
  Receive Date: 20111006
  Receipt Date: 20110922
  Transmission Date: 20120403
  Serious: Yes (Other)
  Sender: FDA-Public Use
  Company Number: TPA2011A06108

PATIENT
  Age: 64 Year
  Sex: Female

DRUGS (16)
  1. CRESTOR [Concomitant]
  2. COMBIGAN (TIMOLOL MALEATE, BRIMONIDINE TARTRATE) [Concomitant]
  3. HYDROCHLOROTHIAZIDE [Concomitant]
  4. JANUVIA [Concomitant]
  5. METFORMIN HYDROCHLORIDE [Concomitant]
  6. MULTIVITAMIN (ERGOCALCIFEROL, ASCORBIC ACID, PYRIDOXINE HYDROCHLORIDE, [Concomitant]
  7. FLONASE [Concomitant]
  8. LISINOPRIL [Concomitant]
  9. VALACYCLOVIR (VALACICLOVIR HYDROCHLORIDE) [Concomitant]
  10. METOPROLOL TARTRATE [Concomitant]
  11. TUSSIGON (HOMATROPINE METHYLBROMIDE, HYDROCODONE BITARTRATE) [Concomitant]
  12. ASPIRIN [Concomitant]
  13. AVAPRO [Concomitant]
  14. CALCIUM CARBONATE [Concomitant]
  15. ACTOS [Suspect]
     Indication: TYPE 2 DIABETES MELLITUS
     Dosage: 15 MG, 1 IN 1 D, PER ORAL
     Route: 048
     Dates: start: 20070921
  16. ZALATAN (LATANOPROST) [Concomitant]

REACTIONS (1)
  - BLADDER CANCER [None]
